FAERS Safety Report 10067355 (Version 1)
Quarter: 2014Q2

REPORT INFORMATION
  Report Type: Spontaneous
  Country: US (occurrence: US)
  Receive Date: 20140409
  Receipt Date: 20140409
  Transmission Date: 20141212
  Serious: No
  Sender: FDA-Public Use
  Company Number: US-DRREDDYS-USA/USA/13/0032926

PATIENT
  Sex: Male

DRUGS (1)
  1. SILVER SULFADIAZINE [Suspect]
     Indication: TINEA CRURIS
     Route: 061
     Dates: start: 20130722

REACTIONS (2)
  - Off label use [Unknown]
  - No adverse event [Unknown]
